APPROVED DRUG PRODUCT: VOXZOGO
Active Ingredient: VOSORITIDE
Strength: 0.4MG/VIAL
Dosage Form/Route: POWDER;SUBCUTANEOUS
Application: N214938 | Product #001
Applicant: BIOMARIN PHARMACEUTICAL INC
Approved: Nov 19, 2021 | RLD: Yes | RS: Yes | Type: RX

PATENTS:
Patent 11911446 | Expires: Aug 1, 2036
Patent 11590204 | Expires: Aug 1, 2036
Patent 12233106 | Expires: Jul 11, 2042
Patent 12514906 | Expires: Aug 1, 2036
Patent RE48267 | Expires: May 20, 2030
Patent 8198242 | Expires: Jun 11, 2030
Patent 10646550 | Expires: Aug 1, 2036
Patent 9907834 | Expires: Aug 1, 2036

EXCLUSIVITY:
Code: NCE | Date: Nov 19, 2026
Code: NPP | Date: Oct 20, 2026
Code: ODE-387 | Date: Nov 19, 2028
Code: ODE-449 | Date: Oct 20, 2030